FAERS Safety Report 9674043 (Version 1)
Quarter: 2013Q4

REPORT INFORMATION
  Report Type: Spontaneous
  Country: US (occurrence: US)
  Receive Date: 20131106
  Receipt Date: 20131106
  Transmission Date: 20140711
  Serious: No
  Sender: FDA-Public Use
  Company Number: US-AMGEN-USASP2013077303

PATIENT
  Age: 62 Year
  Sex: Female
  Weight: 68.03 kg

DRUGS (6)
  1. ENBREL [Suspect]
     Indication: PSORIATIC ARTHROPATHY
     Dosage: UNK UNK, QWK
     Route: 065
  2. ARTHROTEC [Concomitant]
     Dosage: 0.2/75 MG/MG DAILY
  3. FLEXERIL                           /00428402/ [Concomitant]
     Dosage: 10 MG, TID
  4. ULTRAM                             /00599202/ [Concomitant]
     Dosage: 200 MG, QD
  5. SIMVASTATIN [Concomitant]
     Indication: BLOOD CHOLESTEROL INCREASED
     Dosage: 20 MG, QD
  6. TRAZODONE [Concomitant]
     Dosage: 100 MG, QD

REACTIONS (2)
  - Malaise [Not Recovered/Not Resolved]
  - Chronic sinusitis [Not Recovered/Not Resolved]
